FAERS Safety Report 15374562 (Version 2)
Quarter: 2018Q3

REPORT INFORMATION
  Report Type: Spontaneous
  Country: RU (occurrence: RU)
  Receive Date: 20180912
  Receipt Date: 20180926
  Transmission Date: 20181010
  Serious: Yes (Life-Threatening)
  Sender: FDA-Public Use
  Company Number: RU-CELGENEUS-RUS-20180902002

PATIENT
  Age: 68 Year
  Sex: Female
  Weight: 87 kg

DRUGS (9)
  1. VENETOCLAX. [Concomitant]
     Active Substance: VENETOCLAX
     Indication: ACUTE MYELOID LEUKAEMIA
     Route: 065
  2. DIABETON [Concomitant]
     Active Substance: GLICLAZIDE
     Indication: TYPE 2 DIABETES MELLITUS
     Dosage: 60 MILLIGRAM
     Route: 048
     Dates: start: 20180222
  3. LEUCOSTIM [Concomitant]
     Active Substance: FILGRASTIM
     Indication: NEUTROPENIA
     Dosage: 300 MILLIGRAM
     Route: 058
     Dates: start: 20180829, end: 20180911
  4. LEUCOSTIM [Concomitant]
     Active Substance: FILGRASTIM
     Dosage: 300 MILLIGRAM
     Route: 058
     Dates: start: 20180914, end: 20180918
  5. DEXA?GENTAMICIN [Concomitant]
     Indication: PERIORBITAL OEDEMA
     Dosage: 1 BLOB
     Route: 031
     Dates: start: 20180903, end: 20180910
  6. METFORMIN [Concomitant]
     Active Substance: METFORMIN HYDROCHLORIDE
     Indication: GLUCOSE TOLERANCE IMPAIRED
     Dosage: 850 MILLIGRAM
     Route: 048
     Dates: start: 20171001
  7. ALLOPURINOL. [Concomitant]
     Active Substance: ALLOPURINOL
     Indication: PROPHYLAXIS
     Route: 048
  8. TOBRADEX [Concomitant]
     Active Substance: DEXAMETHASONE\TOBRAMYCIN
     Indication: PERIORBITAL OEDEMA
     Dosage: 1 BLOB
     Route: 031
     Dates: start: 20180903, end: 20180910
  9. AZACITIDINE. [Suspect]
     Active Substance: AZACITIDINE
     Indication: ACUTE MYELOID LEUKAEMIA
     Route: 058
     Dates: start: 20180219

REACTIONS (1)
  - Pneumonia [Not Recovered/Not Resolved]

NARRATIVE: CASE EVENT DATE: 20180904
